FAERS Safety Report 7544148-1 (Version None)
Quarter: 2011Q2

REPORT INFORMATION
  Report Type: 
  Country: None (occurrence: None)
  Receive Date: 20110613
  Receipt Date: 20060315
  Transmission Date: 20111010
  Serious: Yes (Hospitalization)
  Sender: FDA-Public Use
  Company Number: PHFR2006GB01011

PATIENT
  Sex: Female

DRUGS (3)
  1. CEPHALOSPORIN C [Concomitant]
  2. METRONIDAZOLE [Concomitant]
  3. CLOZAPINE [Suspect]
     Indication: SCHIZOPHRENIA
     Dosage: UNK, UNK
     Route: 048
     Dates: start: 20041111

REACTIONS (7)
  - PLATELET COUNT INCREASED [None]
  - NEUTROPHIL COUNT INCREASED [None]
  - CROHN'S DISEASE [None]
  - CLOSTRIDIAL INFECTION [None]
  - TOXICITY TO VARIOUS AGENTS [None]
  - DIARRHOEA [None]
  - WHITE BLOOD CELL COUNT INCREASED [None]
